FAERS Safety Report 14520016 (Version 2)
Quarter: 2018Q1

REPORT INFORMATION
  Report Type: Spontaneous
  Country: US (occurrence: US)
  Receive Date: 20180212
  Receipt Date: 20180212
  Transmission Date: 20180509
  Serious: Yes (Hospitalization, Other)
  Sender: FDA-Public Use
  Company Number: US-TEVA-2018-US-856719

PATIENT
  Age: 84 Year
  Sex: Male

DRUGS (1)
  1. LORAZEPAM. [Suspect]
     Active Substance: LORAZEPAM
     Indication: ANXIETY
     Route: 065

REACTIONS (8)
  - Laceration [Unknown]
  - Dysphonia [Unknown]
  - Insomnia [Unknown]
  - Drug effect decreased [Unknown]
  - Localised infection [Unknown]
  - Skin infection [Unknown]
  - Osteomyelitis [Unknown]
  - Skin haemorrhage [Unknown]
